FAERS Safety Report 11545643 (Version 1)
Quarter: 2015Q3

REPORT INFORMATION
  Report Type: Spontaneous
  Country: IT (occurrence: IT)
  Receive Date: 20150924
  Receipt Date: 20150924
  Transmission Date: 20151125
  Serious: Yes (Hospitalization)
  Sender: FDA-Public Use
  Company Number: IT-PFIZER INC-2015130820

PATIENT
  Age: 73 Year
  Sex: Female

DRUGS (6)
  1. METHOTREXATE (METHOTREXATE SODIUM) [Suspect]
     Active Substance: METHOTREXATE SODIUM
     Indication: RHEUMATOID ARTHRITIS
     Dosage: 12.5 MG, WEEKLY
     Route: 030
     Dates: start: 20070101, end: 20150409
  2. METOCAL [Concomitant]
  3. OLPRESS [Concomitant]
     Active Substance: OLMESARTAN MEDOXOMIL
  4. FOLINA /00024201/ [Concomitant]
     Active Substance: FOLIC ACID
  5. MEDROL [Suspect]
     Active Substance: METHYLPREDNISOLONE
     Dosage: 1 DF, DAILY
     Route: 048
     Dates: start: 20070101
  6. ZEFFIX [Concomitant]
     Active Substance: LAMIVUDINE

REACTIONS (1)
  - Urinary tract infection [Recovering/Resolving]

NARRATIVE: CASE EVENT DATE: 20150409
